FAERS Safety Report 8348822-9 (Version None)
Quarter: 2012Q2

REPORT INFORMATION
  Report Type: 
  Country: None (occurrence: None)
  Receive Date: 20120508
  Receipt Date: 20120423
  Transmission Date: 20120825
  Serious: Yes (Hospitalization)
  Sender: FDA-Public Use
  Company Number: JPI-P-018626

PATIENT
  Age: 39 Year
  Sex: Female

DRUGS (21)
  1. LORAZEPAM [Concomitant]
  2. FAMOTIDINE [Concomitant]
  3. TAMSULOSIN HCL [Concomitant]
  4. OLANZAPINE [Concomitant]
  5. OXCARBAZEPINE [Concomitant]
  6. PSYCHOSTIMULANTS (NOS) [Suspect]
     Indication: NARCOLEPSY
     Dates: end: 20111123
  7. VALPROIC ACID [Concomitant]
  8. DEPAKOTE ER [Concomitant]
  9. LEVOTHYROXINE SODIUM [Concomitant]
  10. ARMODAFINIL [Concomitant]
  11. BACLOFEN [Concomitant]
  12. NICOTINE POLACRILEX [Concomitant]
  13. MODAFINIL [Suspect]
     Indication: NARCOLEPSY
     Dates: end: 20111123
  14. CLONAZEPAM [Concomitant]
  15. RAMELTEON [Concomitant]
  16. HEXAVITAMINS [Concomitant]
  17. XYREM [Suspect]
     Indication: CATAPLEXY
     Dosage: SEE IMAGE
     Route: 048
     Dates: start: 20080801
  18. XYREM [Suspect]
     Indication: CATAPLEXY
     Dosage: SEE IMAGE
     Route: 048
     Dates: start: 20111116
  19. DULOXETINE HYDROCHLORIDE [Concomitant]
  20. DOCUSATE [Concomitant]
  21. SOAP SUDS ENEMA [Concomitant]

REACTIONS (2)
  - MANIA [None]
  - INSOMNIA [None]
